FAERS Safety Report 12398869 (Version 1)
Quarter: 2016Q2

REPORT INFORMATION
  Report Type: Report from Study
  Country: BR (occurrence: BR)
  Receive Date: 20160524
  Receipt Date: 20160524
  Transmission Date: 20160815
  Serious: Yes (Other)
  Sender: FDA-Public Use
  Company Number: PHHY2016BR070639

PATIENT
  Sex: Female

DRUGS (1)
  1. ACLASTA [Suspect]
     Active Substance: ZOLEDRONIC ACID
     Indication: PRODUCT USED FOR UNKNOWN INDICATION
     Dosage: UNK
     Route: 065
     Dates: start: 201504

REACTIONS (8)
  - Fall [Unknown]
  - Drug ineffective [Unknown]
  - Gait disturbance [Unknown]
  - Hand fracture [Unknown]
  - Tremor [Unknown]
  - Hypersensitivity [Unknown]
  - Upper limb fracture [Unknown]
  - Dust allergy [Unknown]
